FAERS Safety Report 10061355 (Version 1)
Quarter: 2014Q2

REPORT INFORMATION
  Report Type: Spontaneous
  Country: US (occurrence: US)
  Receive Date: 20140407
  Receipt Date: 20140407
  Transmission Date: 20141212
  Serious: Yes (Hospitalization)
  Sender: FDA-Public Use
  Company Number: US-SUN PHARMACEUTICAL INDUSTRIES LTD-2014SUN00726

PATIENT
  Age: 70 Year
  Sex: Male

DRUGS (10)
  1. DONEPEZIL HYDROCHLORIDE TABLETS, 5MG [Suspect]
     Indication: PRODUCT USED FOR UNKNOWN INDICATION
     Dosage: 5 MG, DAILY
     Route: 065
  2. DONEPEZIL HYDROCHLORIDE TABLETS, 5MG [Suspect]
     Dosage: 10 MG, DAILY
     Route: 065
  3. QUETIAPINE FUMARATE 25MG TABLETS [Suspect]
     Indication: PRODUCT USED FOR UNKNOWN INDICATION
     Dosage: 500 MG, DAILY
     Route: 065
  4. LEVOTHYROXINE [Concomitant]
     Dosage: 50 MCG, DAILY
  5. FERROUS SULFATE [Concomitant]
     Dosage: 325 MG, BID
  6. ASCORBIC ACID [Concomitant]
     Dosage: 250 MG, BID
  7. AMLODIPINE [Concomitant]
     Dosage: 5 MG, DAILY
  8. SPIRONOLACTONE [Concomitant]
     Dosage: 25 MG, DAILY
  9. HYDROCHLOROTHIAZIDE [Concomitant]
     Dosage: 25 MG, DAILY
  10. MEMANTINE [Concomitant]
     Dosage: 5 MG, DAILY

REACTIONS (1)
  - Mania [Recovered/Resolved]
